FAERS Safety Report 9606229 (Version 1)
Quarter: 2013Q4

REPORT INFORMATION
  Report Type: Spontaneous
  Country: US (occurrence: US)
  Receive Date: 20131008
  Receipt Date: 20131008
  Transmission Date: 20140711
  Serious: No
  Sender: FDA-Public Use
  Company Number: US-AMGEN-USASP2013046902

PATIENT
  Age: 76 Year
  Sex: Female

DRUGS (2)
  1. PROLIA [Suspect]
     Indication: PATELLA FRACTURE
     Dosage: UNK
     Dates: start: 20130626
  2. ALLOPURINOL [Concomitant]
     Indication: GOUT

REACTIONS (3)
  - Abdominal pain [Unknown]
  - Nausea [Unknown]
  - Pain in extremity [Unknown]
